FAERS Safety Report 12787680 (Version 3)
Quarter: 2016Q4

REPORT INFORMATION
  Report Type: Report from Study
  Country: US (occurrence: US)
  Receive Date: 20160928
  Receipt Date: 20161207
  Transmission Date: 20170207
  Serious: Yes (Hospitalization)
  Sender: FDA-Public Use
  Company Number: US-ROCHE-1633757

PATIENT
  Age: 63 Year
  Sex: Male
  Weight: 55.8 kg

DRUGS (27)
  1. NIZORAL [Concomitant]
     Active Substance: KETOCONAZOLE
     Route: 061
     Dates: start: 20150903
  2. SODIUM CHLORIDE. [Concomitant]
     Active Substance: SODIUM CHLORIDE
     Route: 042
     Dates: start: 20150717
  3. ZOFRAN [Concomitant]
     Active Substance: ONDANSETRON HYDROCHLORIDE
     Indication: NAUSEA
     Route: 065
     Dates: start: 20150911, end: 20150916
  4. ATIVAN [Concomitant]
     Active Substance: LORAZEPAM
     Indication: INSOMNIA
     Route: 048
     Dates: start: 20150911, end: 20150916
  5. HYTONE [Concomitant]
     Active Substance: HYDROCORTISONE
     Indication: GENITAL RASH
     Route: 061
     Dates: start: 20150911, end: 20150916
  6. NORVASC [Concomitant]
     Active Substance: AMLODIPINE BESYLATE
     Indication: HYPERTENSION
     Route: 048
     Dates: start: 20150224, end: 20150913
  7. BEVACIZUMAB [Suspect]
     Active Substance: BEVACIZUMAB
     Indication: NEOPLASM
     Dosage: MOST RECENT DOSE WAS ADMINISTERED ON 03/SEP/2015 AT 770 MG.
     Route: 042
     Dates: start: 20150714
  8. SODIUM CHLORIDE. [Concomitant]
     Active Substance: SODIUM CHLORIDE
     Route: 065
     Dates: start: 20150914, end: 20150916
  9. CODEINE/GUAIFENESIN [Concomitant]
     Active Substance: CODEINE\GUAIFENESIN
     Indication: COUGH
     Route: 048
     Dates: start: 20150910, end: 20150916
  10. ZOFRAN [Concomitant]
     Active Substance: ONDANSETRON HYDROCHLORIDE
     Indication: VOMITING
  11. NIZORAL [Concomitant]
     Active Substance: KETOCONAZOLE
     Indication: GENITAL RASH
     Route: 061
     Dates: start: 20150911, end: 20150916
  12. GADAVIST [Concomitant]
     Active Substance: GADOBUTROL
     Route: 042
     Dates: start: 20150915, end: 20150915
  13. HEPARIN FLUSH [Concomitant]
     Active Substance: HEPARIN SODIUM
     Route: 065
     Dates: start: 20150913, end: 20150916
  14. HOMATROPINE/HYDROCODONE [Concomitant]
     Indication: COUGH
     Route: 065
     Dates: start: 20150909, end: 20150919
  15. 50% DEXTROSE [Concomitant]
     Route: 042
     Dates: start: 20150911, end: 20150916
  16. HYDRODIURIL [Concomitant]
     Active Substance: HYDROCHLOROTHIAZIDE
     Indication: HYPERTENSION
     Route: 048
     Dates: start: 20150602, end: 20150916
  17. HYTONE [Concomitant]
     Active Substance: HYDROCORTISONE
     Route: 061
     Dates: start: 20150903
  18. PRINIVIL [Concomitant]
     Active Substance: LISINOPRIL
     Route: 048
     Dates: start: 20150913
  19. DELTASONE [Concomitant]
     Active Substance: PREDNISONE
     Indication: HYPERNATRAEMIA
     Route: 048
     Dates: start: 20150916, end: 20150916
  20. PREDNISONE. [Concomitant]
     Active Substance: PREDNISONE
     Indication: HYPONATRAEMIA
     Route: 065
     Dates: start: 20150813, end: 20150813
  21. SOLU-MEDROL [Concomitant]
     Active Substance: METHYLPREDNISOLONE SODIUM SUCCINATE
     Indication: GENITAL RASH
     Route: 042
     Dates: start: 20150911, end: 20150911
  22. SOLU-MEDROL [Concomitant]
     Active Substance: METHYLPREDNISOLONE SODIUM SUCCINATE
     Route: 042
     Dates: start: 20150912, end: 20150915
  23. HEPARIN FLUSH [Concomitant]
     Active Substance: HEPARIN SODIUM
     Route: 065
     Dates: start: 20150829, end: 20150916
  24. HEPARIN FLUSH [Concomitant]
     Active Substance: HEPARIN SODIUM
     Route: 065
     Dates: start: 20150914, end: 20150916
  25. LUMIGAN [Concomitant]
     Active Substance: BIMATOPROST
     Indication: GLAUCOMA
     Dosage: ONE DROP OTIC
     Route: 065
  26. ATEZOLIZUMAB [Suspect]
     Active Substance: ATEZOLIZUMAB
     Indication: NEOPLASM
     Dosage: MOST RECENT DOSE WAS ADMINISTERED ON 03/SEP/2015 AT 1200 MG.
     Route: 042
     Dates: start: 20150714
  27. OMNIPAQUE [Concomitant]
     Active Substance: IOHEXOL
     Indication: PROPHYLAXIS
     Route: 048
     Dates: start: 20150624

REACTIONS (2)
  - Respiratory failure [Recovering/Resolving]
  - Cardiac failure congestive [Recovering/Resolving]

NARRATIVE: CASE EVENT DATE: 20150910
